FAERS Safety Report 7148431-3 (Version None)
Quarter: 2010Q4

REPORT INFORMATION
  Report Type: 
  Country: None (occurrence: None)
  Receive Date: 20101209
  Receipt Date: 20101130
  Transmission Date: 20110411
  Serious: Yes (Life-Threatening)
  Sender: FDA-Public Use
  Company Number: US-BAXTER-2010BH029291

PATIENT
  Sex: Male

DRUGS (2)
  1. IMMUNE GLOBULIN INTRAVENOUS (HUMAN) [Suspect]
     Indication: CONGENITAL NEUROPATHY
     Route: 065
     Dates: start: 20010101
  2. IMMUNE GLOBULIN INTRAVENOUS (HUMAN) [Suspect]
     Indication: OFF LABEL USE
     Route: 065
     Dates: start: 20010101

REACTIONS (5)
  - NEPHROLITHIASIS [None]
  - OPEN WOUND [None]
  - PULMONARY EMBOLISM [None]
  - THROMBOSIS [None]
  - TYPE 2 DIABETES MELLITUS [None]
